FAERS Safety Report 4838303-9 (Version None)
Quarter: 2005Q4

REPORT INFORMATION
  Report Type: 
  Country: None (occurrence: None)
  Receive Date: 20051123
  Receipt Date: 20051115
  Transmission Date: 20060501
  Serious: Yes (Death)
  Sender: FDA-Public Use
  Company Number: 2005-04066

PATIENT
  Age: 81 Year
  Sex: Male
  Weight: 78 kg

DRUGS (2)
  1. KENTEAR                (OXYBUTYNIN) [Suspect]
     Indication: URGE INCONTINENCE
     Dosage: 3.9 MG, 2/WEEK, TRANSDERMAL
     Route: 062
     Dates: start: 20050624
  2. INSULIN [Concomitant]

REACTIONS (2)
  - ACCIDENT AT HOME [None]
  - FALL [None]
